FAERS Safety Report 10889940 (Version 1)
Quarter: 2015Q1

REPORT INFORMATION
  Report Type: Spontaneous
  Country: US (occurrence: US)
  Receive Date: 20150305
  Receipt Date: 20150305
  Transmission Date: 20150721
  Serious: Yes (Death)
  Sender: FDA-Public Use
  Company Number: US-BANPHARM-20153599

PATIENT
  Age: 54 Year
  Sex: Female

DRUGS (4)
  1. METHADONE [Suspect]
     Active Substance: METHADONE HYDROCHLORIDE
  2. ETHANOL [Suspect]
     Active Substance: ALCOHOL
  3. AMITRIPTYLINE [Suspect]
     Active Substance: AMITRIPTYLINE
  4. DIPHENHYDRAMINE UNKNOWN PRODUCT [Suspect]
     Active Substance: DIPHENHYDRAMINE

REACTIONS (2)
  - Drug abuse [Fatal]
  - Exposure via ingestion [None]
